FAERS Safety Report 17794821 (Version 2)
Quarter: 2020Q4

REPORT INFORMATION
  Report Type: Report from Study
  Country: US (occurrence: US)
  Receive Date: 20200516
  Receipt Date: 20201125
  Transmission Date: 20210113
  Serious: No
  Sender: FDA-Public Use
  Company Number: NVSC2020US132851

PATIENT
  Sex: Male
  Weight: 22 kg

DRUGS (3)
  1. ILARIS [Suspect]
     Active Substance: CANAKINUMAB
     Indication: IMPLANTABLE DEFIBRILLATOR INSERTION
     Dosage: 90 MG (EVERY SEVEN WEEKS)
     Route: 058
     Dates: end: 201910
  2. ILARIS [Suspect]
     Active Substance: CANAKINUMAB
     Dosage: 90 MG (EVERY SEVEN WEEKS)
     Route: 058
  3. ILARIS [Suspect]
     Active Substance: CANAKINUMAB
     Dosage: 90 MG,  EVERY 4 WEEKS
     Route: 058

REACTIONS (2)
  - Condition aggravated [Unknown]
  - Illness [Unknown]
